FAERS Safety Report 7984894-9 (Version None)
Quarter: 2011Q4

REPORT INFORMATION
  Report Type: 
  Country: None (occurrence: None)
  Receive Date: 20111216
  Receipt Date: 20111007
  Transmission Date: 20120403
  Serious: No
  Sender: FDA-Public Use
  Company Number: US-ALLERGAN-1113295US

PATIENT
  Age: 46 Year
  Sex: Female

DRUGS (2)
  1. LATISSE [Suspect]
     Indication: HAIR GROWTH ABNORMAL
     Dosage: 1 GTT, QHS
     Route: 061
     Dates: start: 20110725, end: 20110925
  2. REFRESH [Concomitant]
     Indication: DRY EYE
     Dosage: UNK

REACTIONS (2)
  - DRUG ADMINISTERED AT INAPPROPRIATE SITE [None]
  - PHOTOPHOBIA [None]
